FAERS Safety Report 15571615 (Version 2)
Quarter: 2021Q1

REPORT INFORMATION
  Report Type: Spontaneous
  Country: AU (occurrence: AU)
  Receive Date: 20181031
  Receipt Date: 20210325
  Transmission Date: 20210419
  Serious: Yes (Death, Hospitalization, Other)
  Sender: FDA-Public Use
  Company Number: AU-ASTRAZENECA-2018SF40241

PATIENT
  Age: 38 Year
  Sex: Male

DRUGS (12)
  1. SEROQUEL [Suspect]
     Active Substance: QUETIAPINE FUMARATE
     Indication: EMOTIONAL DISTRESS
     Route: 048
  2. BUPRENORPHINE. [Suspect]
     Active Substance: BUPRENORPHINE
     Indication: DRUG DEPENDENCE
     Dosage: 8.0MG UNKNOWN
     Route: 065
     Dates: start: 20150403, end: 20150403
  3. AVANZA [Suspect]
     Active Substance: MIRTAZAPINE
     Indication: EMOTIONAL DISTRESS
     Route: 065
  4. BUPRENORPHINE. [Suspect]
     Active Substance: BUPRENORPHINE
     Indication: ALCOHOL WITHDRAWAL SYNDROME
     Dosage: 8.0MG UNKNOWN
     Route: 065
     Dates: start: 20150404, end: 20150404
  5. AVANZA [Suspect]
     Active Substance: MIRTAZAPINE
     Indication: ANXIETY
     Route: 065
  6. BUPRENORPHINE. [Suspect]
     Active Substance: BUPRENORPHINE
     Indication: DRUG DEPENDENCE
     Dosage: 4.0MG UNKNOWN
     Route: 065
     Dates: start: 20150403, end: 20150403
  7. BUPRENORPHINE. [Suspect]
     Active Substance: BUPRENORPHINE
     Indication: ALCOHOL WITHDRAWAL SYNDROME
     Dosage: 8.0MG UNKNOWN
     Route: 065
     Dates: start: 20150403, end: 20150403
  8. DIAZEPAM. [Suspect]
     Active Substance: DIAZEPAM
     Indication: DRUG DEPENDENCE
     Route: 065
     Dates: start: 20150402, end: 20150403
  9. AVANZA [Suspect]
     Active Substance: MIRTAZAPINE
     Indication: MENTAL DISORDER
     Route: 065
  10. AVANZA [Suspect]
     Active Substance: MIRTAZAPINE
     Indication: DEPRESSION
     Route: 065
  11. BUPRENORPHINE. [Suspect]
     Active Substance: BUPRENORPHINE
     Indication: ALCOHOL WITHDRAWAL SYNDROME
     Dosage: 4.0MG UNKNOWN
     Route: 065
     Dates: start: 20150403, end: 20150403
  12. BUPRENORPHINE. [Suspect]
     Active Substance: BUPRENORPHINE
     Indication: DRUG DEPENDENCE
     Dosage: 8.0MG UNKNOWN
     Route: 065
     Dates: start: 20150404, end: 20150404

REACTIONS (5)
  - Prescribed overdose [Fatal]
  - Toxicity to various agents [Fatal]
  - Miosis [Fatal]
  - Somnolence [Fatal]
  - Respiratory depression [Fatal]

NARRATIVE: CASE EVENT DATE: 20150403
